FAERS Safety Report 9325488 (Version 1)
Quarter: 2013Q2

REPORT INFORMATION
  Report Type: Spontaneous
  Country: US (occurrence: None)
  Receive Date: 20130531
  Receipt Date: 20130531
  Transmission Date: 20140414
  Serious: Yes (Other)
  Sender: FDA-Public Use
  Company Number: None

PATIENT
  Age: 51 Year
  Sex: Female
  Weight: 58.06 kg

DRUGS (1)
  1. ROSE BENGAL SODIUM [Suspect]
     Dates: start: 20130524, end: 20130524

REACTIONS (4)
  - Discomfort [None]
  - Eye pain [None]
  - Vision blurred [None]
  - Photophobia [None]
